FAERS Safety Report 4374539-1 (Version None)
Quarter: 2004Q2

REPORT INFORMATION
  Report Type: 
  Country: None (occurrence: None)
  Receive Date: 20040609
  Receipt Date: 20040420
  Transmission Date: 20050107
  Serious: Yes (Disabling)
  Sender: FDA-Public Use
  Company Number: US-BRISTOL-MYERS SQUIBB COMPANY-12565545

PATIENT
  Age: 52 Year
  Sex: Female
  Weight: 72 kg

DRUGS (3)
  1. TEQUIN [Suspect]
     Indication: CYSTITIS
     Route: 048
     Dates: start: 20040402, end: 20040402
  2. SEPTRA [Concomitant]
     Indication: CYSTITIS
     Dates: start: 20040401, end: 20040401
  3. CRANBERRY [Concomitant]
     Indication: CYSTITIS
     Dosage: CAPSULES
     Route: 048

REACTIONS (7)
  - ARTHRALGIA [None]
  - ASTHENIA [None]
  - DECREASED APPETITE [None]
  - GASTROINTESTINAL MOTILITY DISORDER [None]
  - JOINT SWELLING [None]
  - PRURITUS [None]
  - VISION BLURRED [None]
